FAERS Safety Report 7207263-8 (Version None)
Quarter: 2011Q1

REPORT INFORMATION
  Report Type: 
  Country: None (occurrence: None)
  Receive Date: 20110103
  Receipt Date: 20101228
  Transmission Date: 20110831
  Serious: Yes (Other)
  Sender: FDA-Public Use
  Company Number: DE-ROCHE-750759

PATIENT
  Sex: Male

DRUGS (1)
  1. BONIVA [Suspect]
     Route: 042
     Dates: start: 20090801

REACTIONS (2)
  - JAW DISORDER [None]
  - OSTEITIS [None]
